FAERS Safety Report 5221950-2 (Version None)
Quarter: 2007Q1

REPORT INFORMATION
  Report Type: 
  Country: None (occurrence: None)
  Receive Date: 20070129
  Receipt Date: 20060130
  Transmission Date: 20070707
  Serious: No
  Sender: FDA-Public Use
  Company Number: MK200601-0036

PATIENT
  Sex: Male

DRUGS (12)
  1. WELLBUTRIN [Suspect]
     Indication: DRUG USE FOR UNKNOWN INDICATION
     Dosage: 200MG TWICE PER DAY
     Route: 048
  2. HYDROCODONE 5/ACET [Suspect]
     Dosage: 500MG TWICE PER DAY
     Route: 065
  3. ACETAMINOPHEN [Concomitant]
     Indication: PAIN
     Dosage: 325MG UNKNOWN
     Route: 065
  4. IBUPROFEN [Concomitant]
     Indication: PAIN
     Dosage: 800MG UNKNOWN
     Route: 065
  5. NORVASC [Concomitant]
     Dosage: 5MG UNKNOWN
     Route: 065
  6. NIFEDIPINE [Concomitant]
     Dosage: 300MG UNKNOWN
     Route: 065
  7. ATENOLOL [Concomitant]
     Dosage: 50MG UNKNOWN
     Route: 065
  8. ENALAPRIL MALEATE [Concomitant]
     Dosage: 10MG UNKNOWN
     Route: 065
  9. OMEPRAZOLE [Concomitant]
     Dosage: 20MG UNKNOWN
     Route: 065
  10. CHLORPHENIRAMINE MALEATE [Concomitant]
     Indication: SINUS DISORDER
     Dosage: 4MG UNKNOWN
     Route: 065
  11. FUROSEMIDE [Concomitant]
     Dosage: 40MG UNKNOWN
     Route: 065
  12. POTASSIUM CHLORIDE [Concomitant]
     Dosage: 10MEQ UNKNOWN
     Route: 065

REACTIONS (2)
  - NAUSEA [None]
  - TREMOR [None]
